FAERS Safety Report 9904182 (Version 1)
Quarter: 2014Q1

REPORT INFORMATION
  Report Type: Report from Study
  Country: US (occurrence: US)
  Receive Date: 20140218
  Receipt Date: 20140218
  Transmission Date: 20141002
  Serious: Yes (Other)
  Sender: FDA-Public Use
  Company Number: US-ROCHE-1349821

PATIENT
  Age: 17 Year
  Sex: Female

DRUGS (5)
  1. BLINDED OMALIZUMAB [Suspect]
     Indication: ASTHMA
     Dosage: THE LAST DOSE PRIOR TO SAE WAS ON 11/SEP/2013
     Route: 065
  2. BLINDED OMALIZUMAB [Suspect]
     Dosage: READMINISTERED ON 09/OCT/2013.
     Route: 065
  3. OMALIZUMAB [Suspect]
     Indication: ASTHMA
     Dosage: THE LAST DOSE PRIOR TO SAE WAS ON 11/SEP/2013
     Route: 065
  4. OMALIZUMAB [Suspect]
     Dosage: READMINISTERED ON 12/DEC/2013
     Route: 065
  5. ALBUTEROL [Concomitant]
     Indication: HYPERSENSITIVITY
     Route: 065
     Dates: start: 20130819, end: 20130819

REACTIONS (1)
  - Anaphylactic reaction [Unknown]
